FAERS Safety Report 10027164 (Version 2)
Quarter: 2014Q1

REPORT INFORMATION
  Report Type: Spontaneous
  Country: US (occurrence: US)
  Receive Date: 20140321
  Receipt Date: 20140321
  Transmission Date: 20141002
  Serious: No
  Sender: FDA-Public Use
  Company Number: US-MYLANLABS-2013S1025554

PATIENT
  Age: 72 Year
  Sex: Female
  Weight: 55.79 kg

DRUGS (8)
  1. ESTRADIOL TRANSDERMAL SYSTEM, USP [Suspect]
     Indication: OESTROGEN REPLACEMENT THERAPY
     Dosage: CHANGE PATCH EVERY WEEK.
     Route: 062
     Dates: start: 201310, end: 201311
  2. ESTRADIOL TRANSDERMAL SYSTEM, USP [Suspect]
     Indication: OSTEOPOROSIS
     Dosage: CHANGE PATCH EVERY WEEK.
     Route: 062
     Dates: start: 201310, end: 201311
  3. ZINC [Concomitant]
     Indication: MINERAL SUPPLEMENTATION
  4. VITAMIN E [Concomitant]
     Indication: VITAMIN SUPPLEMENTATION
  5. FISH OIL [Concomitant]
     Indication: NUTRITIONAL SUPPLEMENTATION
  6. ZOVIRAX [Concomitant]
     Indication: ANTIVIRAL PROPHYLAXIS
     Route: 048
     Dates: start: 20131012, end: 20131017
  7. PROGESTERONE [Concomitant]
     Dates: start: 20131001, end: 20131010
  8. CETAPHIL /00498501/ [Concomitant]

REACTIONS (4)
  - Application site reaction [Recovered/Resolved]
  - Application site hypersensitivity [Recovered/Resolved]
  - Application site pruritus [Recovered/Resolved]
  - Application site rash [Recovered/Resolved]
